FAERS Safety Report 8612814-2 (Version None)
Quarter: 2012Q3

REPORT INFORMATION
  Report Type: 
  Country: None (occurrence: None)
  Receive Date: 20120822
  Receipt Date: 20111021
  Transmission Date: 20120928
  Serious: No
  Sender: FDA-Public Use
  Company Number: US-ASTRAZENECA-2010SE47891

PATIENT
  Age: 76 Year
  Sex: Female
  Weight: 74.8 kg

DRUGS (6)
  1. ATACAND HCT [Suspect]
     Route: 048
  2. SYMBICORT [Suspect]
     Indication: CHRONIC OBSTRUCTIVE PULMONARY DISEASE
     Dosage: 160/4.5 MG TWO TIMES A DAY
     Route: 055
     Dates: start: 20090101
  3. SYMBICORT [Suspect]
     Dosage: 160/4.5 MG TWO TIMES A DAY
     Route: 055
     Dates: start: 20100901
  4. ATACAND [Suspect]
     Route: 048
  5. NEXIUM [Suspect]
     Route: 048
  6. TOPROL-XL [Suspect]
     Route: 048

REACTIONS (4)
  - HYPOTENSION [None]
  - MUSCLE SPASMS [None]
  - LACRIMATION INCREASED [None]
  - WRONG TECHNIQUE IN DRUG USAGE PROCESS [None]
